FAERS Safety Report 18303356 (Version 1)
Quarter: 2020Q3

REPORT INFORMATION
  Report Type: Spontaneous
  Country: DK (occurrence: DK)
  Receive Date: 20200923
  Receipt Date: 20200923
  Transmission Date: 20201103
  Serious: Yes (Life-Threatening, Hospitalization)
  Sender: FDA-Public Use
  Company Number: DK-JNJFOC-20200927475

PATIENT
  Age: 76 Year
  Sex: Male

DRUGS (6)
  1. BURINEX [Concomitant]
     Active Substance: BUMETANIDE
     Indication: DIURETIC THERAPY
     Dosage: DOSAGE: 2 +1+1STRENGHT: 1 MG
     Route: 048
     Dates: start: 20180718
  2. KALIUMKLORID ORIFARM [Concomitant]
     Indication: MINERAL SUPPLEMENTATION
     Dosage: STRENGHT: 750 MG
     Route: 048
     Dates: start: 20180718
  3. MIRTAZAPIN HEXAL [Concomitant]
     Active Substance: MIRTAZAPINE
     Indication: DEPRESSION
     Dosage: STRENGHT: 15 MG
     Route: 048
     Dates: start: 20180104
  4. RIVAROXABAN [Suspect]
     Active Substance: RIVAROXABAN
     Indication: THROMBOSIS PROPHYLAXIS
     Dosage: STRENGHT: 20 MG
     Route: 048
     Dates: start: 20171109, end: 20200823
  5. SPIRIX [Concomitant]
     Active Substance: SPIRONOLACTONE
     Indication: DIURETIC THERAPY
     Dosage: STRENGHT: 15 MG
     Route: 048
     Dates: start: 20171226
  6. METOPROLSUCCINATE TEVA [Concomitant]
     Indication: HEART RATE IRREGULAR
     Dosage: STRENGHT: 25 MG
     Route: 048
     Dates: start: 20180209

REACTIONS (5)
  - Dysarthria [Not Recovered/Not Resolved]
  - Haemorrhage intracranial [Not Recovered/Not Resolved]
  - Confusional state [Not Recovered/Not Resolved]
  - Hemiparesis [Not Recovered/Not Resolved]
  - Aphasia [Not Recovered/Not Resolved]

NARRATIVE: CASE EVENT DATE: 20200823
